FAERS Safety Report 13204611 (Version 2)
Quarter: 2017Q1

REPORT INFORMATION
  Report Type: Spontaneous
  Country: US (occurrence: US)
  Receive Date: 20170209
  Receipt Date: 20170324
  Transmission Date: 20170428
  Serious: No
  Sender: FDA-Public Use
  Company Number: US-GLAXOSMITHKLINE-US2017018224

PATIENT
  Age: 18 Year
  Sex: Female
  Weight: 81.63 kg

DRUGS (1)
  1. ADVAIR DISKUS [Suspect]
     Active Substance: FLUTICASONE PROPIONATE\SALMETEROL XINAFOATE
     Indication: ASTHMA
     Dosage: UNK
     Route: 055
     Dates: start: 20161216, end: 20161230

REACTIONS (2)
  - Product quality issue [Unknown]
  - Retching [Unknown]

NARRATIVE: CASE EVENT DATE: 20161216
